FAERS Safety Report 6376652-6 (Version None)
Quarter: 2009Q3

REPORT INFORMATION
  Report Type: 
  Country: None (occurrence: None)
  Receive Date: 20090925
  Receipt Date: 20090918
  Transmission Date: 20100115
  Serious: No
  Sender: FDA-Public Use
  Company Number: US-SOLVAY-00209005413

PATIENT
  Age: 70 Year
  Sex: Female

DRUGS (3)
  1. UNKNOWN HEART MEDICATION [Concomitant]
     Indication: CARDIAC DISORDER
     Dosage: DAILY DOSE:  UNKNOWN
     Route: 048
  2. ANDROGEL [Suspect]
     Indication: ACCIDENTAL EXPOSURE
     Dosage: DAILY DOSE: 5 GRAM(S); VIA PUMP
     Route: 062
  3. UNKNOWN CHOLESTEROL MEDICATION [Concomitant]
     Indication: BLOOD CHOLESTEROL INCREASED
     Dosage: DAILY DOSE:  UNKNOWN
     Route: 048

REACTIONS (1)
  - ALOPECIA [None]
